FAERS Safety Report 7936843 (Version 3)
Quarter: 2013Q1

REPORT INFORMATION
  Report Type: Spontaneous
  Country: US (occurrence: US)
  Receive Date: 20110509
  Receipt Date: 20130115
  Transmission Date: 20140127
  Serious: Yes (Hospitalization)
  Sender: FDA-Public Use
  Company Number: US-ASTRAZENECA-2011SE21586

PATIENT
  Age: 59 Year
  Sex: Female

DRUGS (3)
  1. SYMBICORT PMDI [Suspect]
     Dosage: ON UNKNWON FREQUNECY
     Route: 055
  2. LUNG CLEANSE [Concomitant]
  3. OXYGEN [Concomitant]

REACTIONS (6)
  - Alveolitis allergic [Unknown]
  - Gait disturbance [Unknown]
  - Cyanosis [Unknown]
  - Dyspnoea [Unknown]
  - Influenza [Unknown]
  - Pyrexia [Unknown]
